FAERS Safety Report 6279636-1 (Version None)
Quarter: 2009Q3

REPORT INFORMATION
  Report Type: 
  Country: None (occurrence: None)
  Receive Date: 20090723
  Receipt Date: 20090720
  Transmission Date: 20100115
  Serious: Yes (Hospitalization)
  Sender: FDA-Public Use
  Company Number: D0061848A

PATIENT
  Sex: Female
  Weight: 50 kg

DRUGS (2)
  1. LAMICTAL [Suspect]
     Dosage: 100MG SEE DOSAGE TEXT
     Route: 048
     Dates: start: 20090604, end: 20090604
  2. SPIRITS [Suspect]
     Dosage: .5BT SEE DOSAGE TEXT
     Route: 048
     Dates: start: 20090604, end: 20090604

REACTIONS (3)
  - INTENTIONAL OVERDOSE [None]
  - NO ADVERSE EVENT [None]
  - SUICIDE ATTEMPT [None]
